FAERS Safety Report 7643847-0 (Version None)
Quarter: 2011Q3

REPORT INFORMATION
  Report Type: 
  Country: None (occurrence: None)
  Receive Date: 20110729
  Receipt Date: 20100713
  Transmission Date: 20111222
  Serious: No
  Sender: FDA-Public Use
  Company Number: US-GLAXOSMITHKLINE-A0872180A

PATIENT
  Sex: Female

DRUGS (3)
  1. SUMATRIPTAN SUCCINATE [Suspect]
     Indication: MIGRAINE
     Dosage: 50MG UNKNOWN
     Route: 048
  2. IMITREX [Suspect]
     Indication: MIGRAINE
     Route: 048
  3. SUMATRIPTAN SUCCINATE [Suspect]
     Dosage: 50MG UNKNOWN
     Route: 048

REACTIONS (2)
  - FLUSHING [None]
  - THERAPEUTIC RESPONSE DECREASED [None]
